FAERS Safety Report 25844013 (Version 1)
Quarter: 2025Q3

REPORT INFORMATION
  Report Type: Spontaneous
  Country: CO (occurrence: CO)
  Receive Date: 20250925
  Receipt Date: 20250925
  Transmission Date: 20251020
  Serious: Yes (Hospitalization, Other)
  Sender: IPCA
  Company Number: CO-IPCA LABORATORIES LIMITED-IPC-2025-CO-002581

PATIENT

DRUGS (1)
  1. TRAMADOL [Suspect]
     Active Substance: TRAMADOL
     Indication: Product used for unknown indication
     Route: 048

REACTIONS (6)
  - Toxic leukoencephalopathy [Recovering/Resolving]
  - Rhabdomyolysis [Recovering/Resolving]
  - Pneumonitis [Recovering/Resolving]
  - Acute kidney injury [Recovering/Resolving]
  - Systemic infection [Recovering/Resolving]
  - Head injury [Unknown]
